FAERS Safety Report 4333797-X (Version None)
Quarter: 2004Q2

REPORT INFORMATION
  Report Type: 
  Country: None (occurrence: None)
  Receive Date: 20040402
  Receipt Date: 20040317
  Transmission Date: 20050107
  Serious: Yes (Hospitalization)
  Sender: FDA-Public Use
  Company Number: A03200400869

PATIENT
  Age: 68 Year
  Sex: Male
  Weight: 77.5651 kg

DRUGS (5)
  1. ELOXATIN [Suspect]
     Indication: COLORECTAL CANCER
     Dosage: 160 MG Q2W - INTRAVENOUS NOS
     Route: 042
     Dates: start: 20040315, end: 20040315
  2. FLUOROURACIL [Concomitant]
  3. LEUCOVORIN CALCIUM [Concomitant]
  4. DEXAMETHASONE [Concomitant]
  5. GRANISETRON [Concomitant]

REACTIONS (6)
  - ATRIAL FIBRILLATION [None]
  - BLOOD PRESSURE INCREASED [None]
  - HYPOKALAEMIA [None]
  - SINUS BRADYCARDIA [None]
  - SUPRAVENTRICULAR EXTRASYSTOLES [None]
  - TRANSIENT ISCHAEMIC ATTACK [None]
